FAERS Safety Report 5583466-3 (Version None)
Quarter: 2007Q4

REPORT INFORMATION
  Report Type: 
  Country: None (occurrence: None)
  Receive Date: 20071231
  Receipt Date: 20071213
  Transmission Date: 20080405
  Serious: Yes (Other)
  Sender: FDA-Public Use
  Company Number: 8022281

PATIENT
  Age: 33 Year
  Sex: Female

DRUGS (4)
  1. KEPPRA [Suspect]
     Indication: CONVULSION
     Dosage: 500 MG 2/D PO
     Route: 048
     Dates: start: 20070215
  2. PHENERGAN HCL [Concomitant]
  3. ZOFRAN [Concomitant]
  4. GABAPENTIN [Concomitant]

REACTIONS (10)
  - CAESAREAN SECTION [None]
  - DRUG EXPOSURE DURING PREGNANCY [None]
  - INFUSION SITE EXTRAVASATION [None]
  - MUNCHAUSEN'S SYNDROME [None]
  - NEUROPATHY [None]
  - PHLEBITIS [None]
  - PREGNANCY [None]
  - PREMATURE BABY [None]
  - PREMATURE RUPTURE OF MEMBRANES [None]
  - UNRESPONSIVE TO STIMULI [None]
